FAERS Safety Report 13389633 (Version 1)
Quarter: 2017Q1

REPORT INFORMATION
  Report Type: Report from Study
  Country: US (occurrence: US)
  Receive Date: 20170331
  Receipt Date: 20170331
  Transmission Date: 20170429
  Serious: Yes (Death)
  Sender: FDA-Public Use
  Company Number: US-ROCHE-1912053

PATIENT
  Age: 57 Year
  Sex: Female

DRUGS (3)
  1. HEPARIN [Concomitant]
     Active Substance: HEPARIN SODIUM
  2. ALTEPLASE [Suspect]
     Active Substance: ALTEPLASE
     Indication: PELVIC VENOUS THROMBOSIS
  3. ALTEPLASE [Suspect]
     Active Substance: ALTEPLASE
     Indication: PULMONARY EMBOLISM
     Route: 065

REACTIONS (3)
  - Acute kidney injury [Fatal]
  - Cerebral hypoperfusion [Fatal]
  - Hypotension [Fatal]
